FAERS Safety Report 11324309 (Version 1)
Quarter: 2015Q3

REPORT INFORMATION
  Report Type: Report from Study
  Country: US (occurrence: US)
  Receive Date: 20150730
  Receipt Date: 20150730
  Transmission Date: 20151125
  Serious: No
  Sender: FDA-Public Use
  Company Number: PHEH2014US022294

PATIENT
  Sex: Male
  Weight: 75.74 kg

DRUGS (3)
  1. GILENYA [Suspect]
     Active Substance: FINGOLIMOD HYDROCHLORIDE
     Indication: MULTIPLE SCLEROSIS
     Dosage: 0.5 MG, QD
     Route: 048
     Dates: start: 201405
  2. ZOLPIDEM TARTRATE. [Suspect]
     Active Substance: ZOLPIDEM TARTRATE
     Indication: PRODUCT USED FOR UNKNOWN INDICATION
     Route: 065
  3. CHOLECALCIFEROL [Concomitant]
     Active Substance: CHOLECALCIFEROL
     Indication: PRODUCT USED FOR UNKNOWN INDICATION
     Route: 065

REACTIONS (12)
  - Apathy [Unknown]
  - Asthenia [Unknown]
  - Somnambulism [Unknown]
  - Anxiety [Unknown]
  - Insomnia [Unknown]
  - Vision blurred [Unknown]
  - Cognitive disorder [Unknown]
  - Depression [Unknown]
  - Mental impairment [Unknown]
  - Fatigue [Unknown]
  - Rash [Unknown]
  - Diplopia [Unknown]
